FAERS Safety Report 5259964-9 (Version None)
Quarter: 2007Q1

REPORT INFORMATION
  Report Type: 
  Country: None (occurrence: None)
  Receive Date: 20070307
  Receipt Date: 20070227
  Transmission Date: 20070707
  Serious: Yes (Hospitalization)
  Sender: FDA-Public Use
  Company Number: 153413USA

PATIENT
  Age: 53 Year
  Sex: Male
  Weight: 95 kg

DRUGS (5)
  1. BECLOMETHASONE DIPROPIONATE [Suspect]
     Indication: ASTHMA
     Dosage: PHASE II, 240 MCG BID, RESPIRATORY (INHALATION)
     Route: 055
     Dates: start: 20061221, end: 20070219
  2. SALMETEROL XINAFOATE [Suspect]
     Dosage: PHASE II, 50 MCG BID, RESPIRATORY (INHALATION)
     Route: 055
     Dates: start: 20061221, end: 20070219
  3. PREDNISONE [Suspect]
     Dosage: PHASE III 0.5 MG/KG IN AM, ORAL
     Route: 048
     Dates: start: 20070220, end: 20070225
  4. SERETIDE /01420901/ [Suspect]
     Dosage: PHASE I 250/50 MCG BID, RESPIRATORY (INHALATION)
     Route: 055
     Dates: start: 20061122, end: 20061220
  5. FELODIPINE [Concomitant]

REACTIONS (1)
  - GASTROINTESTINAL HAEMORRHAGE [None]
